FAERS Safety Report 16411594 (Version 1)
Quarter: 2019Q2

REPORT INFORMATION
  Report Type: Spontaneous
  Country: US (occurrence: US)
  Receive Date: 20190610
  Receipt Date: 20190610
  Transmission Date: 20190711
  Serious: Yes (Death, Hospitalization)
  Sender: FDA-Public Use
  Company Number: US-SA-2019SA156032

PATIENT
  Age: 63 Year
  Sex: Male

DRUGS (1)
  1. BCG FOR IMMUNOTHERAPY [Suspect]
     Active Substance: BACILLUS CALMETTE-GUERIN ANTIGEN, UNSPECIFIED SUBSTRAIN
     Indication: BLADDER CANCER
     Dosage: 10 INTRAVESICAL BCG ADMINISTRATION IN A YEAR
     Route: 043

REACTIONS (19)
  - Respiratory distress [Fatal]
  - Joint stiffness [Fatal]
  - Dyspnoea [Fatal]
  - Pyrexia [Fatal]
  - Disseminated intravascular coagulation [Fatal]
  - Pulmonary embolism [Fatal]
  - Granuloma [Fatal]
  - Cardio-respiratory arrest [Fatal]
  - Disseminated Bacillus Calmette-Guerin infection [Fatal]
  - Disorientation [Fatal]
  - Pneumonia [Fatal]
  - Delirium [Fatal]
  - Tubulointerstitial nephritis [Fatal]
  - Sepsis [Fatal]
  - Confusional state [Fatal]
  - Gait disturbance [Fatal]
  - Cyanosis [Fatal]
  - Pallor [Fatal]
  - Vocal cord paralysis [Fatal]
